FAERS Safety Report 8153358-4 (Version None)
Quarter: 2012Q1

REPORT INFORMATION
  Report Type: 
  Country: None (occurrence: None)
  Receive Date: 20120221
  Receipt Date: 20120216
  Transmission Date: 20120608
  Serious: No
  Sender: FDA-Public Use
  Company Number: US-PFIZER INC-2011312788

PATIENT
  Sex: Female
  Weight: 99.773 kg

DRUGS (1)
  1. ADVIL CONGESTION RELIEF [Suspect]
     Indication: SINUS CONGESTION
     Dosage: 200 MG, 2X/DAY
     Route: 048
     Dates: start: 20111218, end: 20111222

REACTIONS (3)
  - DRUG INEFFECTIVE [None]
  - HEADACHE [None]
  - UPPER RESPIRATORY TRACT CONGESTION [None]
